FAERS Safety Report 9999787 (Version 1)
Quarter: 2014Q1

REPORT INFORMATION
  Report Type: Report from Study
  Country: US (occurrence: US)
  Receive Date: 20140312
  Receipt Date: 20140312
  Transmission Date: 20141002
  Serious: Yes (Hospitalization)
  Sender: FDA-Public Use
  Company Number: US-ACTELION-A-US2014-95751

PATIENT
  Age: 52 Year
  Sex: Female

DRUGS (7)
  1. MACITENTAN [Suspect]
     Indication: PULMONARY ARTERIAL HYPERTENSION
     Dosage: 10 UNK, UNK
     Route: 048
     Dates: start: 20140102
  2. WELLBUTRIN [Concomitant]
  3. ADVAIR [Concomitant]
  4. LASIX [Concomitant]
  5. LYRICA [Concomitant]
  6. CRESTOR [Concomitant]
  7. SPIRIVA [Concomitant]

REACTIONS (1)
  - Pneumonia [Recovered/Resolved]
